FAERS Safety Report 9122931 (Version 4)
Quarter: 2013Q3

REPORT INFORMATION
  Report Type: Report from Study
  Country: US (occurrence: US)
  Receive Date: 20130227
  Receipt Date: 20130802
  Transmission Date: 20140515
  Serious: Yes (Hospitalization, Other)
  Sender: FDA-Public Use
  Company Number: US-ELI_LILLY_AND_COMPANY-US201203004680

PATIENT
  Age: 68 Year
  Sex: Female

DRUGS (3)
  1. TERIPARATIDE [Suspect]
     Indication: OSTEOPOROSIS
     Dosage: 20 UG, QD
     Dates: start: 20120223
  2. TERIPARATIDE [Suspect]
     Dosage: 20 UG, QD
  3. LASIX [Concomitant]

REACTIONS (12)
  - Myocardial infarction [Unknown]
  - Mitral valve incompetence [Unknown]
  - Coronary artery occlusion [Unknown]
  - Cardiac failure congestive [Unknown]
  - Blood pressure decreased [Unknown]
  - Dehydration [Unknown]
  - Thyroid neoplasm [Unknown]
  - Injection site haemorrhage [Unknown]
  - Injection site bruising [Unknown]
  - Injection site pain [Unknown]
  - Fracture [Unknown]
  - Lung disorder [Unknown]
